FAERS Safety Report 21411955 (Version 1)
Quarter: 2022Q4

REPORT INFORMATION
  Report Type: Spontaneous
  Country: US (occurrence: None)
  Receive Date: 20221005
  Receipt Date: 20221005
  Transmission Date: 20230113
  Serious: No
  Sender: FDA-Public Use
  Company Number: None

PATIENT
  Sex: 0

DRUGS (1)
  1. TRUXIMA [Suspect]
     Active Substance: RITUXIMAB-ABBS

REACTIONS (4)
  - Pruritus [None]
  - Chills [None]
  - Infusion related reaction [None]
  - Therapy interrupted [None]

NARRATIVE: CASE EVENT DATE: 20221003
